FAERS Safety Report 7273868-1 (Version None)
Quarter: 2011Q1

REPORT INFORMATION
  Report Type: 
  Country: None (occurrence: None)
  Receive Date: 20110203
  Receipt Date: 20110125
  Transmission Date: 20110831
  Serious: Yes (Other)
  Sender: FDA-Public Use
  Company Number: IT-BAYER-2011-008575

PATIENT
  Sex: Male

DRUGS (3)
  1. AVELOX [Suspect]
     Dosage: 400 MG, QD
     Route: 048
     Dates: start: 20101209, end: 20101221
  2. ETAPIAM [Concomitant]
     Indication: TUBERCULOSIS
     Dosage: 1200 MG, QD
     Route: 048
     Dates: start: 20101209, end: 20101217
  3. RIFADIN [Concomitant]
     Indication: TUBERCULOSIS
     Dosage: 600 MG, QD
     Route: 048
     Dates: start: 20101209, end: 20101217

REACTIONS (2)
  - OCULAR ICTERUS [None]
  - HYPERBILIRUBINAEMIA [None]
